FAERS Safety Report 5048071-6 (Version None)
Quarter: 2006Q3

REPORT INFORMATION
  Report Type: 
  Country: None (occurrence: None)
  Receive Date: 20060711
  Receipt Date: 20060628
  Transmission Date: 20061208
  Serious: Yes (Hospitalization)
  Sender: FDA-Public Use
  Company Number: PHEH2006US08530

PATIENT
  Age: 47 Year
  Sex: Female

DRUGS (1)
  1. GLEEVEC [Suspect]
     Indication: CHRONIC MYELOID LEUKAEMIA
     Route: 048
     Dates: start: 20030101

REACTIONS (4)
  - EXPOSURE TO TOXIC AGENT [None]
  - HERPETIC STOMATITIS [None]
  - LIP HAEMORRHAGE [None]
  - PANCYTOPENIA [None]
